FAERS Safety Report 25539663 (Version 1)
Quarter: 2025Q3

REPORT INFORMATION
  Report Type: Spontaneous
  Country: EU (occurrence: EU)
  Receive Date: 20250710
  Receipt Date: 20250710
  Transmission Date: 20251020
  Serious: Yes (Other)
  Sender: PFIZER
  Company Number: EU-PFIZER INC-PV202500082031

PATIENT
  Age: 56 Year
  Sex: Female

DRUGS (1)
  1. PALBOCICLIB [Suspect]
     Active Substance: PALBOCICLIB
     Indication: Triple positive breast cancer

REACTIONS (3)
  - Renal failure [Unknown]
  - Diarrhoea [Unknown]
  - Off label use [Unknown]
